FAERS Safety Report 7321257-3 (Version None)
Quarter: 2011Q1

REPORT INFORMATION
  Report Type: 
  Country: None (occurrence: None)
  Receive Date: 20110228
  Receipt Date: 20110222
  Transmission Date: 20110831
  Serious: Yes (Other)
  Sender: FDA-Public Use
  Company Number: HR-ABBOTT-11P-216-0707055-00

PATIENT
  Sex: Female

DRUGS (2)
  1. HUMIRA [Suspect]
     Indication: GASTROINTESTINAL DISORDER
  2. HUMIRA [Suspect]
     Indication: SPONDYLOARTHROPATHY

REACTIONS (1)
  - PROCTITIS [None]
